FAERS Safety Report 5062713-0 (Version None)
Quarter: 2006Q3

REPORT INFORMATION
  Report Type: 
  Country: None (occurrence: None)
  Receive Date: 20060725
  Receipt Date: 20060725
  Transmission Date: 20061208
  Serious: Yes (Death)
  Sender: FDA-Public Use
  Company Number: None

PATIENT
  Sex: Male
  Weight: 139.7079 kg

DRUGS (10)
  1. FAZACLO   100MG   ALAMO PHARMACEUTICALS [Suspect]
     Indication: SCHIZOPHRENIFORM DISORDER
     Dosage: SEE IMAGE
     Route: 048
     Dates: start: 20030924, end: 20060701
  2. CLONAZEPAM [Concomitant]
  3. PHENYTOIN [Concomitant]
  4. FENOFIBRATE [Concomitant]
  5. FISH OIL [Concomitant]
  6. ATENOLOL [Concomitant]
  7. DOCUSATE CALCIUM [Concomitant]
  8. CALCIUM CARB/VIT D [Concomitant]
  9. NIACIN [Concomitant]
  10. ASPIRIN [Concomitant]

REACTIONS (8)
  - ABDOMINAL PAIN [None]
  - BACK PAIN [None]
  - CHROMATURIA [None]
  - FLANK PAIN [None]
  - PNEUMONIA [None]
  - PULMONARY EMBOLISM [None]
  - PYREXIA [None]
  - URINARY TRACT INFECTION [None]
